FAERS Safety Report 13406120 (Version 2)
Quarter: 2017Q2

REPORT INFORMATION
  Report Type: Spontaneous
  Country: GB (occurrence: GB)
  Receive Date: 20170405
  Receipt Date: 20170418
  Transmission Date: 20170830
  Serious: Yes (Other)
  Sender: FDA-Public Use
  Company Number: GB-BRISTOL-MYERS SQUIBB COMPANY-BMS-2017-027397

PATIENT
  Age: 53 Year
  Sex: Male

DRUGS (2)
  1. YERVOY [Suspect]
     Active Substance: IPILIMUMAB
     Indication: LUNG NEOPLASM MALIGNANT
     Dosage: 3 MG/KG, UNK
     Route: 065
     Dates: start: 201405
  2. NIVOLUMAB [Suspect]
     Active Substance: NIVOLUMAB
     Indication: LUNG NEOPLASM MALIGNANT
     Dosage: 1 MG/KG, UNK
     Route: 065
     Dates: start: 201405

REACTIONS (10)
  - Liver function test abnormal [Recovering/Resolving]
  - Clostridium test positive [Unknown]
  - Rash [Unknown]
  - Abdominal pain [Unknown]
  - Diarrhoea [Recovering/Resolving]
  - Thyroiditis [Unknown]
  - Product use in unapproved indication [Unknown]
  - Inflammatory bowel disease [Unknown]
  - Colitis [Unknown]
  - Gastroenteritis norovirus [Unknown]
